FAERS Safety Report 8277732-0 (Version None)
Quarter: 2012Q2

REPORT INFORMATION
  Report Type: 
  Country: None (occurrence: None)
  Receive Date: 20120412
  Receipt Date: 20120403
  Transmission Date: 20120825
  Serious: Yes (Hospitalization)
  Sender: FDA-Public Use
  Company Number: US-JNJFOC-20120402913

PATIENT
  Sex: Male
  Weight: 28.3 kg

DRUGS (16)
  1. REMICADE [Suspect]
     Indication: INFLAMMATORY BOWEL DISEASE
     Route: 042
     Dates: start: 20090602, end: 20100216
  2. MERCAPTOPURINE [Concomitant]
  3. OMEPRAZOLE [Concomitant]
  4. PEPTAMEN [Concomitant]
  5. HYOSCYAMINE [Concomitant]
  6. SUCRALFATE [Concomitant]
  7. LORATADINE [Concomitant]
  8. MIRALAX [Concomitant]
  9. PREDNISONE TAB [Concomitant]
  10. HUMIRA [Concomitant]
     Dates: start: 20100415
  11. MUPIROCIN [Concomitant]
  12. MESALAMINE [Concomitant]
  13. TRIAMCINOLONE [Concomitant]
  14. CHOLECALCIFEROL [Concomitant]
  15. HYDROCORTISONE [Concomitant]
  16. DIPHENHYDRAMINE HCL [Concomitant]

REACTIONS (1)
  - FOOD INTOLERANCE [None]
